FAERS Safety Report 25204806 (Version 1)
Quarter: 2025Q2

REPORT INFORMATION
  Report Type: Report from Study
  Country: IT (occurrence: IT)
  Receive Date: 20250416
  Receipt Date: 20250416
  Transmission Date: 20250716
  Serious: Yes (Death)
  Sender: ABBVIE
  Company Number: IT-ABBVIE-6234195

PATIENT
  Sex: Female

DRUGS (1)
  1. AVIBACTAM\AZTREONAM [Suspect]
     Active Substance: AVIBACTAM\AZTREONAM
     Indication: Enterobacter infection

REACTIONS (1)
  - Death [Fatal]
